FAERS Safety Report 4772149-5 (Version None)
Quarter: 2005Q3

REPORT INFORMATION
  Report Type: 
  Country: None (occurrence: None)
  Receive Date: 20050919
  Receipt Date: 20040811
  Transmission Date: 20060218
  Serious: No
  Sender: FDA-Public Use
  Company Number: US-BRISTOL-MYERS SQUIBB COMPANY-12668737

PATIENT
  Age: 39 Year
  Sex: Male
  Weight: 127 kg

DRUGS (5)
  1. DEFINITY [Suspect]
     Indication: ECHOCARDIOGRAM
     Dosage: 2 INJECTIONS OF .5CC
     Route: 040
     Dates: start: 20040811, end: 20040811
  2. POTASSIUM [Concomitant]
  3. ALLOPURINOL [Concomitant]
  4. TOPROL-XL [Concomitant]
  5. PERCOCET [Concomitant]

REACTIONS (1)
  - HYPOAESTHESIA [None]
